FAERS Safety Report 5071339-4 (Version None)
Quarter: 2006Q3

REPORT INFORMATION
  Report Type: 
  Country: None (occurrence: None)
  Receive Date: 20060804
  Receipt Date: 20060111
  Transmission Date: 20061208
  Serious: No
  Sender: FDA-Public Use
  Company Number: US-AMGEN-US164417

PATIENT
  Sex: Female

DRUGS (5)
  1. ARANESP [Suspect]
     Indication: ANAEMIA
     Dates: start: 20050701
  2. FOSAMAX [Concomitant]
  3. PREDNISONE TAB [Concomitant]
  4. NEUPOGEN [Concomitant]
     Indication: DRUG USE FOR UNKNOWN INDICATION
  5. PRILOSEC [Concomitant]

REACTIONS (1)
  - HAEMOGLOBIN DECREASED [None]
